FAERS Safety Report 23460404 (Version 1)
Quarter: 2024Q1

REPORT INFORMATION
  Report Type: Spontaneous
  Country: PT (occurrence: PT)
  Receive Date: 20240131
  Receipt Date: 20240131
  Transmission Date: 20240410
  Serious: Yes (Hospitalization, Other)
  Sender: FDA-Public Use
  Company Number: None

PATIENT
  Age: 81 Year
  Sex: Male
  Weight: 55 kg

DRUGS (17)
  1. CARBOPLATIN [Suspect]
     Active Substance: CARBOPLATIN
     Indication: Small cell lung cancer
     Dosage: AUC5 IV, DAY 1, 21/21 DAYS
     Dates: start: 20230928
  2. ETOPOSIDE [Suspect]
     Active Substance: ETOPOSIDE
     Indication: Small cell lung cancer
     Dosage: ETOPOSIDE 100MG IV, DAY 1, 21/21 DAYS; ETOPOSIDE ORAL 200MG, DAYS 2 AND 3
     Dates: start: 20230928
  3. ATEZOLIZUMAB [Suspect]
     Active Substance: ATEZOLIZUMAB
     Indication: Small cell lung cancer
     Dosage: ATEZOLIZUMAB IV 1200MG, DAY 1, 21/21 DAYS
     Dates: start: 20230928
  4. ETOPOSIDE [Suspect]
     Active Substance: ETOPOSIDE
     Indication: Small cell lung cancer
     Dosage: ETOPOSIDE ORAL 200 MG, DAYS 2 AND 3
     Dates: start: 20230929
  5. BISACODYL [Concomitant]
     Active Substance: BISACODYL
     Dosage: AT DINNER (FOR DIARRHEA)
  6. PENTOXIFYLLINE [Concomitant]
     Active Substance: PENTOXIFYLLINE
  7. DUTASTERIDE\TAMSULOSIN HYDROCHLORIDE [Concomitant]
     Active Substance: DUTASTERIDE\TAMSULOSIN HYDROCHLORIDE
     Dosage: DOSE: 1 TOTAL
  8. ZOLPIDEM [Concomitant]
     Active Substance: ZOLPIDEM TARTRATE
     Dosage: AT BEDTIME
  9. SODIUM CHLORIDE [Concomitant]
     Active Substance: SODIUM CHLORIDE
  10. MAGNESIUM ASPARTATE HYDROCHLORIDE [Concomitant]
     Active Substance: MAGNESIUM ASPARTATE HYDROCHLORIDE
     Dosage: 1 SACHET 2X/DAY
  11. ATORVASTATIN [Concomitant]
     Active Substance: ATORVASTATIN
     Dosage: AT DINNER
  12. FUROSEMIDE [Concomitant]
     Active Substance: FUROSEMIDE
     Dosage: AT BREAKFAST
  13. AMLODIPINE BESYLATE\LISINOPRIL [Concomitant]
     Active Substance: AMLODIPINE BESYLATE\LISINOPRIL
     Dosage: AT BREAKFAST; DOSE: 1 TOTAL
  14. HERBALS\SAW PALMETTO [Concomitant]
     Active Substance: HERBALS\SAW PALMETTO
  15. ASPIRIN [Concomitant]
     Active Substance: ASPIRIN
     Dosage: AT LUNCH
  16. OMEPRAZOLE [Concomitant]
     Active Substance: OMEPRAZOLE
     Dosage: IN FASTING
  17. METFORMIN HYDROCHLORIDE\SITAGLIPTIN PHOSPHATE [Concomitant]
     Active Substance: METFORMIN HYDROCHLORIDE\SITAGLIPTIN PHOSPHATE
     Dosage: DOSE: 1 TOTAL

REACTIONS (4)
  - Asthenia [Recovering/Resolving]
  - Intermittent claudication [Recovering/Resolving]
  - Iridocyclitis [Recovering/Resolving]
  - Febrile neutropenia [Unknown]

NARRATIVE: CASE EVENT DATE: 20231105
